FAERS Safety Report 15589553 (Version 2)
Quarter: 2018Q4

REPORT INFORMATION
  Report Type: Spontaneous
  Country: ES (occurrence: ES)
  Receive Date: 20181106
  Receipt Date: 20181113
  Transmission Date: 20190205
  Serious: Yes (Death, Hospitalization)
  Sender: FDA-Public Use
  Company Number: ES-ACCORD-091368

PATIENT
  Age: 90 Year
  Sex: Female

DRUGS (1)
  1. METHOTREXATE. [Suspect]
     Active Substance: METHOTREXATE
     Indication: RHEUMATOID ARTHRITIS
     Dosage: 2.5 MG TWO TABLETS A WEEK
     Route: 048
     Dates: start: 2017

REACTIONS (1)
  - Pancytopenia [Fatal]

NARRATIVE: CASE EVENT DATE: 20180113
